FAERS Safety Report 4735642-7 (Version None)
Quarter: 2005Q3

REPORT INFORMATION
  Report Type: 
  Country: None (occurrence: None)
  Receive Date: 20050805
  Receipt Date: 20050727
  Transmission Date: 20060218
  Serious: Yes (Other)
  Sender: FDA-Public Use
  Company Number: GB-GLAXOSMITHKLINE-B0389010A

PATIENT
  Sex: Female
  Weight: 92 kg

DRUGS (1)
  1. ALBUTEROL SULFATE HFA [Suspect]
     Dosage: 100MCG PER DAY
     Route: 065
     Dates: start: 20050608, end: 20050615

REACTIONS (1)
  - DISTURBANCE IN ATTENTION [None]
